FAERS Safety Report 6530224-9 (Version None)
Quarter: 2010Q1

REPORT INFORMATION
  Report Type: 
  Country: None (occurrence: None)
  Receive Date: 20100107
  Receipt Date: 20091229
  Transmission Date: 20100710
  Serious: Yes (Death)
  Sender: FDA-Public Use
  Company Number: BR-PFIZER INC-2009315752

PATIENT
  Age: 70 Year
  Sex: Female
  Weight: 50 kg

DRUGS (3)
  1. SUNITINIB MALATE [Suspect]
     Indication: RENAL CELL CARCINOMA
     Dosage: 50 MG, 1X/DAY
     Route: 048
     Dates: start: 20091124, end: 20091217
  2. PARACETAMOL [Concomitant]
     Indication: FLANK PAIN
     Dosage: UNK
     Route: 048
     Dates: start: 20091117
  3. OMEPRAZOLE [Concomitant]
     Indication: DYSPEPSIA
     Dosage: UNK
     Route: 048
     Dates: start: 20091117

REACTIONS (1)
  - SEPTIC SHOCK [None]
